FAERS Safety Report 16485861 (Version 8)
Quarter: 2021Q1

REPORT INFORMATION
  Report Type: Spontaneous
  Country: US (occurrence: US)
  Receive Date: 20190627
  Receipt Date: 20210205
  Transmission Date: 20210419
  Serious: No
  Sender: FDA-Public Use
  Company Number: US-SA-2019SA053746

PATIENT
  Age: 34 Year
  Sex: Female
  Weight: 72.11 kg

DRUGS (1)
  1. CEREZYME [Suspect]
     Active Substance: IMIGLUCERASE
     Indication: GAUCHER^S DISEASE
     Dosage: 4400 U, QOW
     Route: 041
     Dates: start: 20180712

REACTIONS (4)
  - Therapy cessation [Unknown]
  - Weight increased [Unknown]
  - Product dose omission issue [Unknown]
  - Exposure during pregnancy [Unknown]

NARRATIVE: CASE EVENT DATE: 20190621
